FAERS Safety Report 9190326 (Version 1)
Quarter: 2013Q1

REPORT INFORMATION
  Report Type: Spontaneous
  Country: US (occurrence: US)
  Receive Date: 20130326
  Receipt Date: 20130326
  Transmission Date: 20140127
  Serious: Yes (Hospitalization)
  Sender: FDA-Public Use
  Company Number: US-BAYER-2013-036667

PATIENT
  Age: 51 Year
  Sex: Female

DRUGS (12)
  1. YAZ [Suspect]
     Indication: CONTRACEPTION
  2. GIANVI [Suspect]
  3. FISH OIL [Concomitant]
     Dosage: UNK
     Dates: end: 20120222
  4. SIMVASTATIN [Concomitant]
  5. MEDROL [METHYLPREDNISOLONE] [Concomitant]
  6. SKELAXIN [Concomitant]
  7. ULTRAM [Concomitant]
  8. BENICAR [Concomitant]
  9. COENZYME A [Concomitant]
  10. MULTI-VITAMIN [Concomitant]
  11. CALCIUM [Concomitant]
  12. TRAMADOL [Concomitant]

REACTIONS (1)
  - Deep vein thrombosis [None]
